FAERS Safety Report 20406534 (Version 2)
Quarter: 2022Q1

REPORT INFORMATION
  Report Type: Report from Study
  Country: GB (occurrence: GB)
  Receive Date: 20220131
  Receipt Date: 20220302
  Transmission Date: 20220423
  Serious: Yes (Hospitalization, Other)
  Sender: FDA-Public Use
  Company Number: GB-KOREA IPSEN Pharma-2021-30703

PATIENT
  Sex: Male

DRUGS (1)
  1. LANREOTIDE ACETATE [Suspect]
     Active Substance: LANREOTIDE ACETATE
     Indication: Neuroendocrine tumour
     Dosage: 120 MG/0.5 ML
     Route: 058

REACTIONS (5)
  - Pancreatic disorder [Unknown]
  - Appendix disorder [Unknown]
  - Spinal cord compression [Not Recovered/Not Resolved]
  - Neuropathy peripheral [Unknown]
  - Pain [Unknown]
